FAERS Safety Report 4897111-3 (Version None)
Quarter: 2005Q4

REPORT INFORMATION
  Report Type: 
  Country: None (occurrence: None)
  Receive Date: 20051228
  Receipt Date: 20050408
  Transmission Date: 20060501
  Serious: Yes (Hospitalization)
  Sender: FDA-Public Use
  Company Number: USA050495258

PATIENT
  Age: 31 Year
  Sex: Male

DRUGS (2)
  1. HUMULIN U [Suspect]
  2. HUMULIN 50/50 [Suspect]

REACTIONS (2)
  - BLOOD GLUCOSE INCREASED [None]
  - KETOSIS [None]
